FAERS Safety Report 15266496 (Version 2)
Quarter: 2018Q3

REPORT INFORMATION
  Report Type: Spontaneous
  Country: US (occurrence: US)
  Receive Date: 20180810
  Receipt Date: 20180822
  Transmission Date: 20181010
  Serious: Yes (Other)
  Sender: FDA-Public Use
  Company Number: US-TEVA-2018-US-938863

PATIENT
  Age: 81 Year
  Sex: Female

DRUGS (1)
  1. BUDESONIDE. [Suspect]
     Active Substance: BUDESONIDE
     Indication: CHRONIC OBSTRUCTIVE PULMONARY DISEASE
     Dosage: INHALATION SUSPENSION, DOSE STRENGTH:  0.5 MG/2 ML
     Route: 065
     Dates: start: 201710

REACTIONS (10)
  - Depression [Unknown]
  - Cough [Unknown]
  - Eating disorder [Unknown]
  - Dyspnoea [Recovered/Resolved]
  - Auscultation [Unknown]
  - Decreased appetite [Unknown]
  - Pulmonary congestion [Recovered/Resolved]
  - Withdrawal syndrome [Unknown]
  - Wheezing [Recovered/Resolved]
  - Oxygen saturation decreased [Unknown]

NARRATIVE: CASE EVENT DATE: 201711
